FAERS Safety Report 25949262 (Version 1)
Quarter: 2025Q4

REPORT INFORMATION
  Report Type: Spontaneous
  Country: US (occurrence: None)
  Receive Date: 20251022
  Receipt Date: 20251022
  Transmission Date: 20260117
  Serious: Yes (Hospitalization)
  Sender: FDA-CTU
  Company Number: None

PATIENT
  Age: 36 Year
  Sex: Female

DRUGS (1)
  1. SKYRIZI [Suspect]
     Active Substance: RISANKIZUMAB-RZAA
     Indication: Psoriasis
     Dosage: OTHER FREQUENCY : EVERY 12 WEEKS;?I_ I_NJ-ECT 150MG SUBCUTANEOUSLY EVERY 12 WEEKS AS D!RECTED.II?
     Route: 058

REACTIONS (1)
  - Ectopic pregnancy [None]

NARRATIVE: CASE EVENT DATE: 20251015
